FAERS Safety Report 8445224-1 (Version None)
Quarter: 2012Q2

REPORT INFORMATION
  Report Type: 
  Country: None (occurrence: None)
  Receive Date: 20120618
  Receipt Date: 20120611
  Transmission Date: 20120825
  Serious: Yes (Hospitalization)
  Sender: FDA-Public Use
  Company Number: GB-ROCHE-1079140

PATIENT
  Sex: Female

DRUGS (11)
  1. NICORANDIL [Concomitant]
  2. VALSARTAN [Concomitant]
  3. OMEPRAZOLE [Concomitant]
  4. NITROGLYCERIN [Concomitant]
  5. SIMVASTATIN [Concomitant]
  6. ASPIRIN [Concomitant]
  7. AMITRIPTYLINE HCL [Concomitant]
  8. LUCENTIS [Suspect]
     Indication: AGE-RELATED MACULAR DEGENERATION
     Route: 050
     Dates: start: 20120111
  9. CHOLECALCIFEROL [Concomitant]
  10. FERROUS FUMARATE [Concomitant]
  11. LEVOTHYROXINE SODIUM [Concomitant]

REACTIONS (1)
  - PNEUMONIA [None]
